FAERS Safety Report 4565199-5 (Version None)
Quarter: 2005Q1

REPORT INFORMATION
  Report Type: 
  Country: None (occurrence: None)
  Receive Date: 20050127
  Receipt Date: 20050127
  Transmission Date: 20050727
  Serious: Yes (Other)
  Sender: FDA-Public Use
  Company Number: None

PATIENT
  Age: 52 Year
  Sex: Female
  Weight: 43.9989 kg

DRUGS (1)
  1. CEFAZOLIN [Suspect]
     Indication: WOUND INFECTION
     Dosage: 1 GR Q 8 IVPB
     Route: 042
     Dates: start: 20041229, end: 20050126

REACTIONS (1)
  - PRURITUS GENERALISED [None]
